FAERS Safety Report 9334839 (Version 2)
Quarter: 2013Q2

REPORT INFORMATION
  Report Type: Spontaneous
  Country: US (occurrence: US)
  Receive Date: 20130606
  Receipt Date: 20130619
  Transmission Date: 20140414
  Serious: Yes (Death, Hospitalization, Other)
  Sender: FDA-Public Use
  Company Number: US-TEVA-409676USA

PATIENT
  Sex: Female

DRUGS (1)
  1. BISOPROLOL [Suspect]

REACTIONS (4)
  - Ovarian cancer [Unknown]
  - Cardiac fibrillation [Unknown]
  - Death [Fatal]
  - Drug dispensing error [Unknown]
